FAERS Safety Report 20798005 (Version 1)
Quarter: 2022Q2

REPORT INFORMATION
  Report Type: Report from Study
  Country: US (occurrence: US)
  Receive Date: 20220506
  Receipt Date: 20220506
  Transmission Date: 20220720
  Serious: Yes (Hospitalization)
  Sender: FDA-Public Use
  Company Number: US-G1-000367

PATIENT
  Age: 38 Year
  Sex: Female
  Weight: 63.3 kg

DRUGS (13)
  1. TRILACICLIB [Suspect]
     Active Substance: TRILACICLIB
     Indication: Myelosuppression
     Dosage: TIME INTERVAL: CYCLICAL; 240 MG/M2 ON DAY 1 AND 8 OF EACH 21-DAY CYCLE
     Route: 041
     Dates: start: 20210819, end: 20211007
  2. CARBOPLATIN [Suspect]
     Active Substance: CARBOPLATIN
     Indication: Triple negative breast cancer
     Dosage: TIME INTERVAL: CYCLICAL; AUC2, ON DAYS 1 AND 8 OF EACH 21 DAY CYCLE
     Route: 041
     Dates: start: 20210819, end: 20210819
  3. CARBOPLATIN [Suspect]
     Active Substance: CARBOPLATIN
     Indication: Triple negative breast cancer
     Dosage: TIME INTERVAL: CYCLICAL; AUC2, ON DAYS 1 AND 8 OF EACH 21 DAY CYCLE
     Route: 041
     Dates: start: 20210825, end: 20210825
  4. CARBOPLATIN [Suspect]
     Active Substance: CARBOPLATIN
     Indication: Triple negative breast cancer
     Dosage: TIME INTERVAL: CYCLICAL; AUC2, ON DAYS 1 AND 8 OF EACH 21 DAY CYCLE
     Route: 041
     Dates: start: 20210909, end: 20211007
  5. GEMCITABINE [Suspect]
     Active Substance: GEMCITABINE
     Indication: Triple negative breast cancer
     Dosage: TIME INTERVAL: CYCLICAL; 1000 MG/M2 ON DAY 1 AND 8 OF EACH 21-DAY CYCLE
     Route: 041
     Dates: start: 20210819, end: 20211007
  6. 1325316 (GLOBALC3Sep20): Gabapentin [Concomitant]
     Indication: Hot flush
     Dosage: FREQUENCY: NIGHTLY
     Route: 048
     Dates: start: 20180125
  7. 3117982 (GLOBALC3Sep20): Morphine [Concomitant]
     Indication: Headache
     Dosage: TIME INTERVAL: AS NECESSARY
     Route: 048
     Dates: start: 20210726
  8. 3117982 (GLOBALC3Sep20): Morphine [Concomitant]
     Indication: Headache
     Dosage: TIME INTERVAL: AS NECESSARY
     Route: 048
  9. 4184942 (GLOBALC3Sep20): Palonosetron [Concomitant]
     Indication: Prophylaxis of nausea and vomiting
     Dosage: TIME INTERVAL: AS NECESSARY
     Route: 042
     Dates: start: 20210819
  10. 1325695 (GLOBALC3Sep20): Dexamethasone [Concomitant]
     Indication: Allergy prophylaxis
     Dosage: TIME INTERVAL: AS NECESSARY; FREQUENCY: WITH TREATMENT
     Route: 042
     Dates: start: 20210819
  11. 3345577 (GLOBALC3Sep20): Lidocaine / Prilocaine [Concomitant]
     Indication: Catheter management
     Dosage: TIME INTERVAL: CYCLICAL; FREQUENCY: WITH TREATMENT
     Route: 061
  12. 1324519 (GLOBALC3Sep20): Acetaminophen [Concomitant]
     Indication: Pain
     Dosage: TIME INTERVAL: AS NECESSARY; 325-500 MG
     Route: 048
     Dates: start: 20210909
  13. 3533466 (GLOBALC3Sep20): trimethoprim/sulfamethoxazole [Concomitant]
     Indication: Urinary tract infection
     Route: 048
     Dates: start: 20211010, end: 20211017

REACTIONS (1)
  - Sepsis [Recovered/Resolved]

NARRATIVE: CASE EVENT DATE: 20211016
